FAERS Safety Report 5834414-X (Version None)
Quarter: 2008Q3

REPORT INFORMATION
  Report Type: 
  Country: None (occurrence: None)
  Receive Date: 20080731
  Receipt Date: 20080715
  Transmission Date: 20090109
  Serious: Yes (Death)
  Sender: FDA-Public Use
  Company Number: DSA_32196_2008

PATIENT
  Age: 84 Year
  Sex: Male

DRUGS (10)
  1. CARDIZEM LA [Suspect]
     Indication: DRUG USE FOR UNKNOWN INDICATION
     Dosage: (DF)
     Dates: start: 20071206, end: 20071206
  2. TIKOSYN [Suspect]
     Indication: DRUG USE FOR UNKNOWN INDICATION
     Dosage: (DF)
     Dates: start: 20071206, end: 20071206
  3. METHADONE HCL [Suspect]
     Indication: DRUG USE FOR UNKNOWN INDICATION
     Dosage: (DF)
     Dates: start: 20071206, end: 20071206
  4. LEXAPRO [Suspect]
     Indication: DRUG USE FOR UNKNOWN INDICATION
     Dosage: (DF)
     Dates: start: 20071206, end: 20071206
  5. SENOKOT [Suspect]
     Indication: DRUG USE FOR UNKNOWN INDICATION
     Dosage: (DF)
     Dates: start: 20071206, end: 20071206
  6. LIDODERM [Suspect]
     Indication: DRUG USE FOR UNKNOWN INDICATION
     Dosage: (DF)
     Dates: start: 20071206, end: 20071206
  7. MS CONTIN [Concomitant]
  8. LEVOTHYROXINE SODIUM [Concomitant]
  9. DIGOXIN [Concomitant]
  10. PRILOSEC [Concomitant]

REACTIONS (2)
  - MEDICATION ERROR [None]
  - WRONG DRUG ADMINISTERED [None]
